FAERS Safety Report 9768999 (Version 1)
Quarter: 2013Q4

REPORT INFORMATION
  Report Type: Other
  Country: GB (occurrence: GB)
  Receive Date: 20131218
  Receipt Date: 20131218
  Transmission Date: 20140711
  Serious: Yes (Life-Threatening)
  Sender: FDA-Public Use
  Company Number: GB-TARO PHARMACEUTICALS U.S.A., INC-2013SUN05234

PATIENT
  Age: 50 Year
  Sex: Male

DRUGS (5)
  1. CARBAMAZEPINE [Suspect]
     Indication: EPILEPSY
     Dosage: 100 MG, UNK
     Route: 065
  2. PROCHLORPERAZINE [Interacting]
     Indication: NAUSEA
     Dosage: 5 MG, TID
     Route: 048
     Dates: start: 20131111, end: 20131115
  3. DOMPERIDONE [Concomitant]
     Dosage: UNK
     Dates: end: 2013
  4. GAVISCON [Concomitant]
     Route: 048
  5. HALOPERIDOL [Concomitant]
     Route: 048

REACTIONS (2)
  - Tonic convulsion [Recovered/Resolved]
  - Drug interaction [Unknown]
